FAERS Safety Report 16839971 (Version 1)
Quarter: 2019Q3

REPORT INFORMATION
  Report Type: Spontaneous
  Country: US (occurrence: US)
  Receive Date: 20190923
  Receipt Date: 20190923
  Transmission Date: 20191005
  Serious: No
  Sender: FDA-Public Use
  Company Number: US-GLAXOSMITHKLINE-US2019168864

PATIENT
  Age: 23 Year
  Sex: Female

DRUGS (1)
  1. ABREVA [Suspect]
     Active Substance: DOCOSANOL
     Indication: ORAL HERPES
     Dosage: UNK
     Dates: start: 20190909, end: 20190909

REACTIONS (2)
  - Drug hypersensitivity [Unknown]
  - Lip swelling [Unknown]

NARRATIVE: CASE EVENT DATE: 20190910
